FAERS Safety Report 10565340 (Version 4)
Quarter: 2015Q1

REPORT INFORMATION
  Report Type: Report from Study
  Country: IL (occurrence: IL)
  Receive Date: 20141105
  Receipt Date: 20150202
  Transmission Date: 20150720
  Serious: No
  Sender: FDA-Public Use
  Company Number: PHHY2013IL113153

PATIENT
  Sex: Male
  Weight: 98 kg

DRUGS (2)
  1. TASIGNA [Suspect]
     Active Substance: NILOTINIB
     Dosage: 600 MG,(400MG AT THE MORNING AND 200 MG AT EVENING)
     Route: 048
  2. TASIGNA [Suspect]
     Active Substance: NILOTINIB
     Indication: CHRONIC MYELOID LEUKAEMIA
     Dosage: 2 DF, BID (400MG AT THE MORNING+200MG AT THE EVENING)
     Route: 048
     Dates: start: 20130901

REACTIONS (10)
  - Weight decreased [Recovering/Resolving]
  - Back pain [Not Recovered/Not Resolved]
  - Fatigue [Not Recovered/Not Resolved]
  - Leukocytosis [Not Recovered/Not Resolved]
  - Dysgeusia [Unknown]
  - Nausea [Not Recovered/Not Resolved]
  - Urinary tract infection [Recovered/Resolved]
  - Blood glucose increased [Recovering/Resolving]
  - Dyspepsia [Not Recovered/Not Resolved]
  - Insomnia [Unknown]
